FAERS Safety Report 20932741 (Version 1)
Quarter: 2022Q2

REPORT INFORMATION
  Report Type: Spontaneous
  Country: US (occurrence: US)
  Receive Date: 20220608
  Receipt Date: 20220608
  Transmission Date: 20220720
  Serious: No
  Sender: FDA-Public Use
  Company Number: US-PFIZER INC-202200808658

PATIENT
  Age: 49 Year
  Sex: Female

DRUGS (2)
  1. BOSULIF [Interacting]
     Active Substance: BOSUTINIB MONOHYDRATE
     Dosage: UNK
  2. OMEPRAZOLE [Interacting]
     Active Substance: OMEPRAZOLE

REACTIONS (1)
  - Drug interaction [Unknown]
